FAERS Safety Report 16458202 (Version 1)
Quarter: 2019Q2

REPORT INFORMATION
  Report Type: Spontaneous
  Country: US (occurrence: US)
  Receive Date: 20190620
  Receipt Date: 20190620
  Transmission Date: 20190711
  Serious: Yes (Other)
  Sender: FDA-Public Use
  Company Number: US-PFIZER INC-2019261213

PATIENT
  Age: 57 Year
  Sex: Female
  Weight: 86.64 kg

DRUGS (2)
  1. LYRICA [Suspect]
     Active Substance: PREGABALIN
     Indication: RADICULOPATHY
     Dosage: 100 MG, 1 TIME A DAY
     Route: 048
  2. LYRICA [Suspect]
     Active Substance: PREGABALIN
     Indication: NECK SURGERY
     Dosage: 100 MG, THREE TIMES DAILY
     Route: 048
     Dates: start: 20170622

REACTIONS (10)
  - Intervertebral disc protrusion [Unknown]
  - Multiple sclerosis [Unknown]
  - Osteoporosis [Unknown]
  - Muscle spasms [Unknown]
  - Bone disorder [Unknown]
  - Multiple fractures [Unknown]
  - Hypoaesthesia [Unknown]
  - Burning sensation [Unknown]
  - Pain [Unknown]
  - Neuropathy peripheral [Unknown]
